FAERS Safety Report 20290230 (Version 1)
Quarter: 2022Q1

REPORT INFORMATION
  Report Type: Spontaneous
  Country: US (occurrence: None)
  Receive Date: 20220103
  Receipt Date: 20220103
  Transmission Date: 20220423
  Serious: Yes (Hospitalization)
  Sender: FDA-Public Use
  Company Number: None

PATIENT
  Age: 75 Year
  Sex: Male
  Weight: 65 kg

DRUGS (1)
  1. AMIODARONE HYDROCHLORIDE [Suspect]
     Active Substance: AMIODARONE HYDROCHLORIDE
     Indication: Atrial fibrillation
     Dosage: 150 MG ONCE IV
     Route: 042
     Dates: start: 20211116, end: 20211116

REACTIONS (3)
  - Hypersensitivity [None]
  - Injection site extravasation [None]
  - Anaphylactic reaction [None]

NARRATIVE: CASE EVENT DATE: 20211116
